FAERS Safety Report 13773733 (Version 1)
Quarter: 2017Q3

REPORT INFORMATION
  Report Type: Spontaneous
  Country: US (occurrence: US)
  Receive Date: 20170720
  Receipt Date: 20170720
  Transmission Date: 20171127
  Serious: Yes (Death)
  Sender: FDA-Public Use
  Company Number: None

PATIENT
  Age: 65 Year
  Sex: Female

DRUGS (1)
  1. POMALYST [Suspect]
     Active Substance: POMALIDOMIDE
     Indication: PLASMA CELL MYELOMA
     Route: 048
     Dates: start: 20170620

REACTIONS (4)
  - Dehydration [None]
  - Metabolic encephalopathy [None]
  - Mental status changes [None]
  - Pneumonia [None]

NARRATIVE: CASE EVENT DATE: 20170707
